FAERS Safety Report 10677020 (Version 1)
Quarter: 2014Q4

REPORT INFORMATION
  Report Type: Spontaneous
  Country: IT (occurrence: IT)
  Receive Date: 20141226
  Receipt Date: 20141226
  Transmission Date: 20150529
  Serious: Yes (Other)
  Sender: FDA-Public Use
  Company Number: IT-SA-2014SA174687

PATIENT
  Age: 53 Year
  Sex: Male

DRUGS (2)
  1. NOVORAPID [Suspect]
     Active Substance: INSULIN ASPART
     Indication: DIABETES MELLITUS
     Dosage: DAILY DOSAGE NOVORAPID: 4 + 12 + 14 IU
     Route: 058
     Dates: start: 20140101, end: 20141126
  2. LANTUS [Suspect]
     Active Substance: INSULIN GLARGINE
     Indication: DIABETES MELLITUS
     Route: 058
     Dates: start: 20140101, end: 20141126

REACTIONS (5)
  - Confusional state [Recovering/Resolving]
  - Disorientation [Recovering/Resolving]
  - Hypoglycaemia [Recovering/Resolving]
  - Clavicle fracture [Recovering/Resolving]
  - Fall [Unknown]

NARRATIVE: CASE EVENT DATE: 20141126
